FAERS Safety Report 11519930 (Version 1)
Quarter: 2015Q3

REPORT INFORMATION
  Report Type: Spontaneous
  Country: US (occurrence: US)
  Receive Date: 20150918
  Receipt Date: 20150918
  Transmission Date: 20151125
  Serious: No
  Sender: FDA-Public Use
  Company Number: US-GLENMARK PHARMACEUTICALS INC, USA.-2015GMK017972

PATIENT

DRUGS (3)
  1. LEUPROLIDE ACETATE. [Suspect]
     Active Substance: LEUPROLIDE ACETATE
     Indication: ENDOMETRIOSIS
     Dosage: UNK, PER MONTH
     Route: 051
     Dates: start: 20150601
  2. ZYRTEC [Concomitant]
     Active Substance: CETIRIZINE HYDROCHLORIDE
     Indication: PRODUCT USED FOR UNKNOWN INDICATION
     Dosage: UNK UNK, QD
  3. NORETHINDRONE ACETATE TABLETS [Suspect]
     Active Substance: NORETHINDRONE ACETATE
     Indication: ENDOMETRIOSIS
     Dosage: UNK UNK, QD
     Route: 065
     Dates: start: 20150601

REACTIONS (2)
  - Hair growth abnormal [Recovering/Resolving]
  - Abdominal pain [Recovering/Resolving]

NARRATIVE: CASE EVENT DATE: 201506
